FAERS Safety Report 8268345-5 (Version None)
Quarter: 2012Q1

REPORT INFORMATION
  Report Type: 
  Country: None (occurrence: None)
  Receive Date: 20120327
  Receipt Date: 20090909
  Transmission Date: 20120608
  Serious: Yes (Other)
  Sender: FDA-Public Use
  Company Number: PHEH2009US10696

PATIENT
  Age: 52 Year

DRUGS (2)
  1. GLEEVEC [Suspect]
     Indication: CHRONIC MYELOID LEUKAEMIA
  2. SPRYCEL [Suspect]

REACTIONS (5)
  - PULMONARY OEDEMA [None]
  - URTICARIA [None]
  - PAIN [None]
  - ASPIRATION PLEURAL CAVITY [None]
  - ORBITAL OEDEMA [None]
